FAERS Safety Report 9281767 (Version 2)
Quarter: 2013Q4

REPORT INFORMATION
  Report Type: Spontaneous
  Country: US (occurrence: US)
  Receive Date: 20130510
  Receipt Date: 20131011
  Transmission Date: 20140711
  Serious: Yes (Death, Hospitalization, Other)
  Sender: FDA-Public Use
  Company Number: US-B.I. PHARMACEUTICALS,INC./RIDGEFIELD-2013-BI-12719BP

PATIENT
  Age: 80 Year
  Sex: Female

DRUGS (6)
  1. PRADAXA [Suspect]
     Indication: ANTICOAGULANT THERAPY
     Dosage: 300 MG
     Route: 048
     Dates: start: 20110215, end: 20110624
  2. DILTIAZEM XR [Concomitant]
     Dosage: 120 MG
  3. METOPROLOL ER [Concomitant]
     Dosage: 50 MG
  4. ANTIVERT [Concomitant]
     Dosage: 25 MG
  5. UNSPECIFIED ALLERGY MEDICATION [Concomitant]
  6. ALBUTEROL [Concomitant]

REACTIONS (5)
  - Bronchial haemorrhage [Fatal]
  - Pulmonary alveolar haemorrhage [Fatal]
  - Pneumonitis [Fatal]
  - Cardiac failure congestive [Unknown]
  - Respiratory failure [Unknown]
